FAERS Safety Report 23203186 (Version 1)
Quarter: 2023Q4

REPORT INFORMATION
  Report Type: Spontaneous
  Country: US (occurrence: None)
  Receive Date: 20231119
  Receipt Date: 20231119
  Transmission Date: 20240110
  Serious: Yes (Life-Threatening, Hospitalization, Disabling, Other)
  Sender: FDA-Public Use
  Company Number: None

PATIENT
  Age: 31 Year
  Sex: Female
  Weight: 60.75 kg

DRUGS (1)
  1. PLAQUENIL [Suspect]
     Active Substance: HYDROXYCHLOROQUINE SULFATE

REACTIONS (8)
  - Substance-induced psychotic disorder [None]
  - Intentional self-injury [None]
  - COVID-19 [None]
  - Rheumatic disorder [None]
  - Nervous system disorder [None]
  - Condition aggravated [None]
  - Psychotic disorder [None]
  - Therapy interrupted [None]

NARRATIVE: CASE EVENT DATE: 20230218
